FAERS Safety Report 9636077 (Version 1)
Quarter: 2013Q4

REPORT INFORMATION
  Report Type: Spontaneous
  Country: US (occurrence: US)
  Receive Date: 20131021
  Receipt Date: 20131021
  Transmission Date: 20140711
  Serious: Yes (Other)
  Sender: FDA-Public Use
  Company Number: US-BAYER-2013-124927

PATIENT
  Sex: Female

DRUGS (2)
  1. AVELOX [Suspect]
     Indication: BRONCHITIS
     Dosage: UNK
     Dates: start: 2012, end: 2012
  2. AVELOX [Suspect]
     Indication: BRONCHITIS
     Dosage: UNK UNK, ONCE
     Dates: start: 201302, end: 201302

REACTIONS (3)
  - Heart rate increased [None]
  - Fear of death [None]
  - Suspected counterfeit product [None]
